FAERS Safety Report 6131480-1 (Version None)
Quarter: 2009Q1

REPORT INFORMATION
  Report Type: 
  Country: None (occurrence: None)
  Receive Date: 20090325
  Receipt Date: 20080813
  Transmission Date: 20090719
  Serious: No
  Sender: FDA-Public Use
  Company Number: US-BRISTOL-MYERS SQUIBB COMPANY-14301972

PATIENT
  Sex: Male

DRUGS (9)
  1. ERBITUX [Suspect]
     Indication: TONSIL CANCER
     Dates: start: 20080731, end: 20080731
  2. BENADRYL [Concomitant]
     Indication: PREMEDICATION
     Dosage: ALSO TAKEN AS 25MG.
     Route: 042
     Dates: start: 20080731
  3. ZANTAC [Concomitant]
     Dosage: 1DF=50 UNITS NOT SPECIFIED.
     Dates: start: 20080731
  4. DECADRON [Concomitant]
     Route: 042
  5. GLIPIZIDE [Concomitant]
     Route: 048
  6. GUAIFENESIN [Concomitant]
  7. NAPROXEN [Concomitant]
  8. PROCHLORPERAZINE [Concomitant]
  9. KYTRIL [Concomitant]
     Route: 042

REACTIONS (4)
  - FLUSHING [None]
  - NAUSEA [None]
  - PRURITUS [None]
  - VOMITING [None]
